FAERS Safety Report 4354144-3 (Version None)
Quarter: 2004Q2

REPORT INFORMATION
  Report Type: 
  Country: None (occurrence: None)
  Receive Date: 20040503
  Receipt Date: 20040420
  Transmission Date: 20050107
  Serious: Yes (Hospitalization)
  Sender: FDA-Public Use
  Company Number: 2004-115360-NL

PATIENT
  Age: 71 Year
  Sex: Male

DRUGS (7)
  1. MIRTAZAPINE [Suspect]
     Indication: DEPRESSION
     Dosage: 30 MG
     Dates: start: 20030201, end: 20030219
  2. MIRTAZAPINE [Suspect]
     Indication: DISEASE RECURRENCE
     Dosage: 30 MG
     Dates: start: 20030201, end: 20030219
  3. RISPERIDONE [Concomitant]
  4. FLUNITRAZEPAM [Concomitant]
  5. NIFEDIPINE [Concomitant]
  6. TAMSULOSIN HYDROCHLORIDE [Concomitant]
  7. SOTALOL HCL [Concomitant]

REACTIONS (1)
  - RESTLESS LEGS SYNDROME [None]
